FAERS Safety Report 7508038-2 (Version None)
Quarter: 2011Q2

REPORT INFORMATION
  Report Type: 
  Country: None (occurrence: None)
  Receive Date: 20110519
  Receipt Date: 20110504
  Transmission Date: 20111010
  Serious: Yes (Death, Other)
  Sender: FDA-Public Use
  Company Number: 20110371

PATIENT
  Sex: Female

DRUGS (2)
  1. CHEMOTHERAPY [Concomitant]
  2. DEXAMETHASONE SODIUM PHOSPHATE [Suspect]
     Dosage: UNK DOSE INJECTION
     Dates: start: 20090424, end: 20090811

REACTIONS (1)
  - DEATH [None]
